FAERS Safety Report 9061446 (Version 1)
Quarter: 2013Q1

REPORT INFORMATION
  Report Type: Spontaneous
  Country: BR (occurrence: BR)
  Receive Date: 20130204
  Receipt Date: 20130204
  Transmission Date: 20140127
  Serious: Yes (Other)
  Sender: FDA-Public Use
  Company Number: BR-ELI_LILLY_AND_COMPANY-BR201301008892

PATIENT
  Age: 58 None
  Sex: Female
  Weight: 69 kg

DRUGS (7)
  1. HUMALOG LISPRO [Suspect]
     Dosage: 24 IU, TID
     Route: 058
  2. LANTUS [Concomitant]
     Dosage: UNK, UNKNOWN
     Route: 065
  3. ACTOS [Concomitant]
     Indication: DIABETES MELLITUS
     Dosage: 30 MG, UNKNOWN
     Route: 065
  4. FLUOXETINE [Concomitant]
     Indication: ANXIETY
     Dosage: UNK, UNKNOWN
     Route: 065
  5. SIMVASTATIN [Concomitant]
     Indication: BLOOD CHOLESTEROL
     Dosage: 40 MG, UNKNOWN
     Route: 065
  6. RENITEC [Concomitant]
     Indication: HYPERTENSION
     Dosage: UNK, UNKNOWN
     Route: 065
  7. METFORMIN [Concomitant]
     Indication: DIABETES MELLITUS
     Dosage: 850 MG, UNKNOWN
     Route: 065

REACTIONS (8)
  - Blood glucose increased [Not Recovered/Not Resolved]
  - Blood glucose decreased [Not Recovered/Not Resolved]
  - Blood glucose abnormal [Not Recovered/Not Resolved]
  - Injection site reaction [Not Recovered/Not Resolved]
  - Injection site haemorrhage [Not Recovered/Not Resolved]
  - Injection site bruising [Not Recovered/Not Resolved]
  - Injection site pain [Not Recovered/Not Resolved]
  - Injection site mass [Not Recovered/Not Resolved]
